FAERS Safety Report 20781719 (Version 2)
Quarter: 2022Q2

REPORT INFORMATION
  Report Type: Spontaneous
  Country: US (occurrence: None)
  Receive Date: 20220504
  Receipt Date: 20220511
  Transmission Date: 20220720
  Serious: No
  Sender: FDA-Public Use
  Company Number: US-MDD US Operations-MDD202106-001102

PATIENT
  Age: 58 Year
  Sex: Female
  Weight: 61.23 kg

DRUGS (18)
  1. XADAGO [Suspect]
     Active Substance: SAFINAMIDE MESYLATE
     Indication: Product used for unknown indication
     Dosage: NOT PROVIDED
     Dates: end: 2018
  2. GOCOVRI [Suspect]
     Active Substance: AMANTADINE
     Indication: Dyskinesia
     Dates: start: 20180314, end: 201906
  3. GOCOVRI [Suspect]
     Active Substance: AMANTADINE
     Dates: start: 201906
  4. GOCOVRI [Suspect]
     Active Substance: AMANTADINE
  5. LEVOTHYROXINE [Concomitant]
     Active Substance: LEVOTHYROXINE
     Dosage: NOT PROVIDED
  6. ATORVASTATIN [Concomitant]
     Active Substance: ATORVASTATIN
     Dosage: NOT PROVIDED
  7. VYTORIN [Concomitant]
     Active Substance: EZETIMIBE\SIMVASTATIN
     Dosage: NOT PROVIDED
  8. CLONAZEPAM [Concomitant]
     Active Substance: CLONAZEPAM
     Dosage: NOT PROVIDED
  9. NEUPRO [Concomitant]
     Active Substance: ROTIGOTINE
     Dosage: NOT PROVIDED
  10. DULCOLAX NOS [Concomitant]
     Active Substance: BISACODYL OR DOCUSATE SODIUM
     Dosage: NOT PROVIDED
  11. PEPCID [Concomitant]
     Active Substance: FAMOTIDINE
     Dosage: NOT PROVIDED
  12. VITAMIN D [Concomitant]
     Active Substance: VITAMIN D NOS
     Dosage: NOT PROVIDED
  13. VITAMIN B COMPLEX [Concomitant]
     Active Substance: CYANOCOBALAMIN\DEXPANTHENOL\NIACINAMIDE\PYRIDOXINE HYDROCHLORIDE\RIBOFLAVIN 5^-PHOSPHATE SODIUM\THIA
     Dosage: NOT PROVIDED
  14. IBUPROFEN [Concomitant]
     Active Substance: IBUPROFEN
     Dosage: NOT PROVIDED
  15. LEVODOPA [Concomitant]
     Active Substance: LEVODOPA
     Dosage: NOT PROVIDED
  16. MELOXICAM [Concomitant]
     Active Substance: MELOXICAM
     Dosage: NOT PROVIDED
  17. RYTARY [Concomitant]
     Active Substance: CARBIDOPA\LEVODOPA
     Dosage: NOT PROVIDED
  18. AMOXICILLIN [Concomitant]
     Active Substance: AMOXICILLIN
     Dosage: NOT PROVIDED

REACTIONS (10)
  - Diverticulum [Not Recovered/Not Resolved]
  - Feeling abnormal [Recovered/Resolved]
  - Executive dysfunction [Recovered/Resolved]
  - Stress [Unknown]
  - Pain [Not Recovered/Not Resolved]
  - Neuropathy peripheral [Not Recovered/Not Resolved]
  - Fatigue [Not Recovered/Not Resolved]
  - Terminal insomnia [Recovered/Resolved]
  - Hallucination [Recovered/Resolved]
  - Fall [Recovering/Resolving]

NARRATIVE: CASE EVENT DATE: 20170101
